FAERS Safety Report 7023360-4 (Version None)
Quarter: 2010Q3

REPORT INFORMATION
  Report Type: 
  Country: None (occurrence: None)
  Receive Date: 20100930
  Receipt Date: 20100819
  Transmission Date: 20110219
  Serious: Yes (Death, Other)
  Sender: FDA-Public Use
  Company Number: US-BAXTER-2010BH003663

PATIENT
  Age: 53 Year
  Sex: Female
  Weight: 99 kg

DRUGS (28)
  1. HEPARIN SODIUM INJECTION [Suspect]
     Indication: INTRAVENOUS CATHETER MANAGEMENT
     Route: 042
     Dates: start: 20080920, end: 20080927
  2. HEPARIN SODIUM INJECTION [Suspect]
     Route: 058
     Dates: start: 20080919
  3. HEPARIN SODIUM INJECTION [Suspect]
     Route: 042
     Dates: start: 20080901
  4. ATENOLOL [Concomitant]
     Indication: HYPERTENSION
     Route: 048
     Dates: end: 20080920
  5. METFORMIN [Concomitant]
     Indication: PRODUCT USED FOR UNKNOWN INDICATION
     Route: 065
  6. ATENOLOL [Concomitant]
     Route: 065
     Dates: start: 20080920, end: 20080921
  7. ATENOLOL [Concomitant]
     Route: 048
     Dates: start: 20080921, end: 20080923
  8. METOPROLOL TARTRATE [Concomitant]
     Indication: HYPERTENSION
     Route: 042
     Dates: start: 20080924, end: 20080924
  9. METOPROLOL TARTRATE [Concomitant]
     Route: 042
     Dates: start: 20080925, end: 20080925
  10. METOPROLOL TARTRATE [Concomitant]
     Route: 042
     Dates: start: 20080926, end: 20080901
  11. HYDRALAZINE HCL [Concomitant]
     Indication: HYPERTENSION
     Route: 042
     Dates: start: 20080926, end: 20080926
  12. LABETALOL HCL [Concomitant]
     Indication: HYPERTENSION
     Route: 042
     Dates: start: 20080901
  13. WARFARIN SODIUM [Concomitant]
     Indication: PULMONARY EMBOLISM
     Route: 065
     Dates: start: 20080801
  14. NEO-SYNEPHRINOL [Concomitant]
     Indication: BLOOD PRESSURE MANAGEMENT
     Route: 065
     Dates: start: 20080918, end: 20080919
  15. PANTOPRAZOLE [Concomitant]
     Indication: PRODUCT USED FOR UNKNOWN INDICATION
     Route: 042
  16. CEFTRIAXONE [Concomitant]
     Indication: PNEUMONIA ASPIRATION
     Route: 065
     Dates: start: 20080922
  17. AZITHROMYCIN [Concomitant]
     Indication: PNEUMONIA ASPIRATION
     Route: 065
     Dates: start: 20080901
  18. FLUCONAZOLE [Concomitant]
     Indication: FUNGAEMIA
     Route: 042
     Dates: start: 20080927
  19. CASPOFUNGIN ACETATE [Concomitant]
     Indication: FUNGAEMIA
     Route: 042
     Dates: start: 20080901
  20. ZOSYN [Concomitant]
     Indication: PNEUMONIA ASPIRATION
     Route: 065
  21. INSULIN ASPART [Concomitant]
     Indication: PRODUCT USED FOR UNKNOWN INDICATION
     Route: 065
  22. MORPHINE [Concomitant]
     Indication: PAIN
     Route: 065
  23. LOVENOX [Concomitant]
     Indication: PULMONARY EMBOLISM
     Route: 065
     Dates: start: 20080101
  24. KEFZOL [Concomitant]
     Indication: PRODUCT USED FOR UNKNOWN INDICATION
     Route: 065
     Dates: start: 20080901, end: 20080901
  25. COLACE [Concomitant]
     Indication: PRODUCT USED FOR UNKNOWN INDICATION
     Route: 065
  26. FERROUS SULFATE [Concomitant]
     Indication: PRODUCT USED FOR UNKNOWN INDICATION
     Route: 065
  27. FUROSEMIDE [Concomitant]
     Indication: PRODUCT USED FOR UNKNOWN INDICATION
     Route: 065
  28. TRAZODONE HCL [Concomitant]
     Indication: PRODUCT USED FOR UNKNOWN INDICATION
     Route: 065

REACTIONS (14)
  - ANTICOAGULANT THERAPY [None]
  - CEREBRAL HAEMORRHAGE [None]
  - ENTEROBACTER BACTERAEMIA [None]
  - FUNGAEMIA [None]
  - GASTROINTESTINAL HAEMORRHAGE [None]
  - HEPARIN-INDUCED THROMBOCYTOPENIA [None]
  - HYPERTENSION [None]
  - LOCAL SWELLING [None]
  - OEDEMA PERIPHERAL [None]
  - PLEURAL EFFUSION [None]
  - PNEUMONIA ASPIRATION [None]
  - PULMONARY EMBOLISM [None]
  - RENAL FAILURE ACUTE [None]
  - THROMBOSIS [None]
